FAERS Safety Report 12658827 (Version 1)
Quarter: 2016Q3

REPORT INFORMATION
  Report Type: Spontaneous
  Country: ES (occurrence: None)
  Receive Date: 20160816
  Receipt Date: 20160816
  Transmission Date: 20161109
  Serious: Yes (Disabling)
  Sender: FDA-Public Use
  Company Number: None

PATIENT
  Age: 25 Year
  Sex: Male
  Weight: 60 kg

DRUGS (1)
  1. PROPECIA [Suspect]
     Active Substance: FINASTERIDE
     Indication: ALOPECIA
     Route: 048
     Dates: start: 20090409, end: 20160502

REACTIONS (4)
  - Depression [None]
  - Sexual dysfunction [None]
  - Gynaecomastia [None]
  - Loss of libido [None]

NARRATIVE: CASE EVENT DATE: 20160215
